FAERS Safety Report 15689112 (Version 1)
Quarter: 2018Q4

REPORT INFORMATION
  Report Type: Spontaneous
  Country: BR (occurrence: BR)
  Receive Date: 20181205
  Receipt Date: 20181205
  Transmission Date: 20190205
  Serious: Yes (Death, Hospitalization, Other)
  Sender: FDA-Public Use
  Company Number: BR-BAXTER-2018BAX029700

PATIENT
  Age: 34 Year
  Sex: Female
  Weight: 52 kg

DRUGS (7)
  1. NEULASTIM [Suspect]
     Active Substance: PEGFILGRASTIM
     Indication: MALIGNANT CONNECTIVE TISSUE NEOPLASM
     Dosage: RECEIVED FIRST TO THIRD CYCLE
     Route: 058
     Dates: start: 20180314, end: 20180330
  2. ETOPOSIDE. [Suspect]
     Active Substance: ETOPOSIDE
     Indication: MALIGNANT CONNECTIVE TISSUE NEOPLASM
     Route: 065
     Dates: start: 20180522, end: 20180619
  3. FAULDVINCRI [Suspect]
     Active Substance: VINCRISTINE SULFATE
     Indication: MALIGNANT CONNECTIVE TISSUE NEOPLASM
     Dosage: RECEIVED FIRST TO THIRD CYCLE
     Route: 042
     Dates: start: 20180314, end: 20180430
  4. FAULDOXO [Suspect]
     Active Substance: DOXORUBICIN HYDROCHLORIDE
     Indication: MALIGNANT CONNECTIVE TISSUE NEOPLASM
     Dosage: RECEIVED FIRST TO THIRD CYCLE
     Route: 042
     Dates: start: 20180314, end: 20180430
  5. GENUXAL [Suspect]
     Active Substance: CYCLOPHOSPHAMIDE
     Indication: MALIGNANT CONNECTIVE TISSUE NEOPLASM
     Dosage: RECEIVED FIRST TO THIRD CYCLE
     Route: 042
     Dates: start: 20180314, end: 20180430
  6. GEMCITABINE [Suspect]
     Active Substance: GEMCITABINE\GEMCITABINE HYDROCHLORIDE
     Indication: MALIGNANT CONNECTIVE TISSUE NEOPLASM
     Route: 065
     Dates: start: 20180705
  7. HOLOXANE [Suspect]
     Active Substance: IFOSFAMIDE
     Indication: MALIGNANT CONNECTIVE TISSUE NEOPLASM
     Route: 065
     Dates: start: 20180522, end: 20180619

REACTIONS (3)
  - Desmoid tumour [Unknown]
  - Disease progression [Fatal]
  - Febrile neutropenia [Recovered/Resolved]

NARRATIVE: CASE EVENT DATE: 20180507
